FAERS Safety Report 5548350-X (Version None)
Quarter: 2007Q4

REPORT INFORMATION
  Report Type: 
  Country: None (occurrence: None)
  Receive Date: 20071211
  Receipt Date: 20071204
  Transmission Date: 20080405
  Serious: Yes (Hospitalization)
  Sender: FDA-Public Use
  Company Number: JP-MERCK-0712USA02036

PATIENT
  Age: 74 Year
  Sex: Female

DRUGS (2)
  1. ZOCOR [Suspect]
     Indication: HYPERLIPIDAEMIA
     Route: 048
     Dates: start: 20070109, end: 20071127
  2. RYTHMODAN [Suspect]
     Indication: ARRHYTHMIA
     Route: 048
     Dates: start: 20050901, end: 20071127

REACTIONS (1)
  - ELECTROCARDIOGRAM QT PROLONGED [None]
